FAERS Safety Report 4565134-X (Version None)
Quarter: 2005Q1

REPORT INFORMATION
  Report Type: 
  Country: None (occurrence: None)
  Receive Date: 20050131
  Receipt Date: 20050125
  Transmission Date: 20050727
  Serious: Yes (Hospitalization)
  Sender: FDA-Public Use
  Company Number: 200510710GDDC

PATIENT
  Age: 82 Year
  Sex: Female

DRUGS (3)
  1. FLUDEX [Suspect]
     Indication: HYPERTENSION
     Route: 048
     Dates: end: 20041129
  2. LASILIX [Suspect]
     Indication: HYPERTENSION
     Route: 048
     Dates: end: 20041129
  3. BISOPROLOL FUMARATE [Suspect]
     Indication: HYPERTENSION
     Route: 048
     Dates: end: 20041129

REACTIONS (6)
  - ABASIA [None]
  - ELECTROLYTE IMBALANCE [None]
  - FALL [None]
  - HYPOKALAEMIA [None]
  - PARESIS [None]
  - RENAL FAILURE ACUTE [None]
